FAERS Safety Report 22589307 (Version 1)
Quarter: 2023Q2

REPORT INFORMATION
  Report Type: Report from Study
  Country: US (occurrence: US)
  Receive Date: 20230612
  Receipt Date: 20230612
  Transmission Date: 20230722
  Serious: Yes (Other)
  Sender: FDA-Public Use
  Company Number: US-BAYER-2023A078214

PATIENT
  Age: 66 Year
  Sex: Male

DRUGS (13)
  1. STIVARGA [Suspect]
     Active Substance: REGORAFENIB
     Indication: Colorectal cancer
     Dosage: 160 MG, QD ON DAYS 1-21, THEN 7 DAYS OFF.
     Route: 048
     Dates: start: 20230427
  2. FENTANYL [Concomitant]
     Active Substance: FENTANYL
     Dosage: UNK
  3. FUROSEMIDE [Concomitant]
     Active Substance: FUROSEMIDE
     Dosage: UNK
  4. GABAPENTIN [Concomitant]
     Active Substance: GABAPENTIN
     Dosage: UNK
  5. A-HYDROCORT [Concomitant]
     Active Substance: HYDROCORTISONE SODIUM SUCCINATE
     Dosage: UNK
  6. LIDOCAINE [Concomitant]
     Active Substance: LIDOCAINE
     Dosage: UNK
  7. LOPERAMIDE [Concomitant]
     Active Substance: LOPERAMIDE
     Dosage: UNK
  8. NALOXONE [Concomitant]
     Active Substance: NALOXONE
     Dosage: UNK
  9. OXYCODONE [Concomitant]
     Active Substance: OXYCODONE
     Dosage: UNK
  10. POTASSIUM CHLORIDE [Concomitant]
     Active Substance: POTASSIUM CHLORIDE
     Dosage: UNK
  11. PROCHLORPERAZINE [Concomitant]
     Active Substance: PROCHLORPERAZINE
     Dosage: UNK
  12. SCOPOLAMINE [Concomitant]
     Active Substance: SCOPOLAMINE
     Dosage: UNK
  13. XARELTO [Concomitant]
     Active Substance: RIVAROXABAN
     Dosage: UNK

REACTIONS (10)
  - Haemorrhage [Recovering/Resolving]
  - Loss of personal independence in daily activities [Recovering/Resolving]
  - Gait disturbance [Recovering/Resolving]
  - Skin exfoliation [Recovering/Resolving]
  - Blister [Recovering/Resolving]
  - Skin fissures [Recovering/Resolving]
  - Swelling [Recovering/Resolving]
  - Skin hypertrophy [Recovering/Resolving]
  - Pain [Recovering/Resolving]
  - Pain in extremity [Recovering/Resolving]
